FAERS Safety Report 17028966 (Version 1)
Quarter: 2019Q4

REPORT INFORMATION
  Report Type: Report from Study
  Country: None (occurrence: US)
  Receive Date: 20191114
  Receipt Date: 20191114
  Transmission Date: 20200122
  Serious: Yes (Hospitalization, Other)
  Sender: FDA-Public Use
  Company Number: US-ABBVIE-19K-163-2999079-00

PATIENT
  Sex: Female

DRUGS (1)
  1. CREON [Suspect]
     Active Substance: PANCRELIPASE AMYLASE\PANCRELIPASE LIPASE\PANCRELIPASE PROTEASE
     Indication: CYSTIC FIBROSIS
     Dosage: 9 CAPSULES PER MEAL, 7 CAPSULES PER SNACK
     Route: 048
     Dates: start: 2005

REACTIONS (3)
  - Product packaging issue [Unknown]
  - Cystic fibrosis [Unknown]
  - Dyspnoea [Unknown]
